FAERS Safety Report 9015571 (Version 1)
Quarter: 2013Q1

REPORT INFORMATION
  Report Type: Spontaneous
  Country: US (occurrence: None)
  Receive Date: 20130102
  Receipt Date: 20130102
  Transmission Date: 20140127
  Serious: Yes (Other)
  Sender: FDA-Public Use
  Company Number: ADR-2012-02351

PATIENT
  Age: 39 Year
  Sex: Male

DRUGS (1)
  1. BACLOFEN INTRATHECAL [Suspect]

REACTIONS (6)
  - Device ineffective [None]
  - Muscle spasticity [None]
  - Thrombosis [None]
  - Thrombosis [None]
  - Bone disorder [None]
  - Convulsion [None]
